FAERS Safety Report 16718079 (Version 3)
Quarter: 2019Q4

REPORT INFORMATION
  Report Type: Spontaneous
  Country: ES (occurrence: ES)
  Receive Date: 20190819
  Receipt Date: 20191008
  Transmission Date: 20200122
  Serious: Yes (Life-Threatening, Hospitalization)
  Sender: FDA-Public Use
  Company Number: ES-CELLTRION INC.-2019ES023645

PATIENT

DRUGS (2)
  1. INFLIXIMAB (UNKNOWN) [Suspect]
     Active Substance: INFLIXIMAB
     Indication: ANKYLOSING SPONDYLITIS
     Dosage: 5 MG/KG, EVERY 10 WEEKS
     Route: 065
  2. METHOTREXATE. [Concomitant]
     Active Substance: METHOTREXATE
     Indication: ANKYLOSING SPONDYLITIS
     Dosage: UNKNOWN
     Route: 065

REACTIONS (8)
  - Shock haemorrhagic [Unknown]
  - Hepatic haematoma [Recovering/Resolving]
  - Device related sepsis [Unknown]
  - Acute respiratory distress syndrome [Unknown]
  - Ileus paralytic [Unknown]
  - Acute kidney injury [Unknown]
  - Pulmonary embolism [Unknown]
  - Product use issue [Unknown]
